FAERS Safety Report 9191725 (Version 1)
Quarter: 2013Q1

REPORT INFORMATION
  Report Type: Spontaneous
  Country: US (occurrence: US)
  Receive Date: 20130326
  Receipt Date: 20130326
  Transmission Date: 20140127
  Serious: Yes (Other)
  Sender: FDA-Public Use
  Company Number: US-ELI_LILLY_AND_COMPANY-US201303006249

PATIENT
  Sex: Female

DRUGS (6)
  1. EVISTA [Suspect]
     Indication: OSTEOPOROSIS
     Dosage: 60 MG, QD
     Dates: end: 200604
  2. FORTEO [Suspect]
     Dosage: 20 UG, UNK
     Dates: start: 20130313
  3. GLUCOPHAGE [Concomitant]
     Dosage: 500 MG, BID
  4. NADOLOL [Concomitant]
     Dosage: 20 MG, UNK
  5. MONOPRIL [Concomitant]
     Dosage: 40 MG, QD
  6. LIPITOR [Concomitant]
     Dosage: 20 MG, QD

REACTIONS (3)
  - Uterine cancer [Unknown]
  - Palpitations [Recovered/Resolved]
  - Dizziness [Recovered/Resolved]
